FAERS Safety Report 9165080 (Version 1)
Quarter: 2013Q1

REPORT INFORMATION
  Report Type: Spontaneous
  Country: US (occurrence: US)
  Receive Date: 20130315
  Receipt Date: 20130315
  Transmission Date: 20140127
  Serious: Yes (Other)
  Sender: FDA-Public Use
  Company Number: US-JNJFOC-20130308095

PATIENT
  Sex: Female
  Weight: 74.84 kg

DRUGS (2)
  1. ELMIRON [Suspect]
     Indication: BLADDER DISORDER
     Route: 048
  2. ESTROGEL [Concomitant]
     Route: 065

REACTIONS (2)
  - Fibromyalgia [Not Recovered/Not Resolved]
  - Spinal fusion surgery [Recovered/Resolved]
